FAERS Safety Report 17799102 (Version 1)
Quarter: 2020Q2

REPORT INFORMATION
  Report Type: Spontaneous
  Country: US (occurrence: US)
  Receive Date: 20200518
  Receipt Date: 20200518
  Transmission Date: 20200714
  Serious: Yes (Hospitalization)
  Sender: FDA-Public Use
  Company Number: US-PFIZER INC-2180598

PATIENT
  Age: 45 Year
  Sex: Female

DRUGS (2)
  1. FLUCONAZOLE. [Suspect]
     Active Substance: FLUCONAZOLE
     Indication: ORAL CANDIDIASIS
     Dosage: 200 MG,FREQ:1 DAY, INTERVAL:1
  2. OXYCODONE [Interacting]
     Active Substance: OXYCODONE
     Indication: BACK PAIN
     Dosage: NOT REPORTED

REACTIONS (2)
  - Overdose [Recovered/Resolved]
  - Inhibitory drug interaction [Recovered/Resolved]
